FAERS Safety Report 6102281-5 (Version None)
Quarter: 2009Q1

REPORT INFORMATION
  Report Type: 
  Country: None (occurrence: None)
  Receive Date: 20090304
  Receipt Date: 20090226
  Transmission Date: 20090719
  Serious: Yes (Hospitalization, Other)
  Sender: FDA-Public Use
  Company Number: IE-ABBOTT-08P-167-0493306-00

PATIENT
  Age: 71 Year
  Sex: Male

DRUGS (9)
  1. KLACID LA [Suspect]
     Indication: PNEUMONIA
     Dates: start: 20080225, end: 20080304
  2. AVELOX [Suspect]
     Indication: PNEUMONIA
     Dates: start: 20080304, end: 20080309
  3. EMCOR [Suspect]
     Indication: HYPERTENSION
     Route: 048
     Dates: end: 20080309
  4. COVERSYL ARGININE [Concomitant]
     Indication: DRUG USE FOR UNKNOWN INDICATION
  5. LIPITOR [Concomitant]
     Indication: DRUG USE FOR UNKNOWN INDICATION
  6. ALLOPURINOL [Concomitant]
     Indication: DRUG USE FOR UNKNOWN INDICATION
  7. SERETIDE DISCUS [Concomitant]
     Indication: DRUG USE FOR UNKNOWN INDICATION
  8. ISTIN [Concomitant]
     Indication: DRUG USE FOR UNKNOWN INDICATION
  9. WARFARIN SODIUM [Concomitant]
     Indication: DRUG USE FOR UNKNOWN INDICATION

REACTIONS (3)
  - BRADYCARDIA [None]
  - BUNDLE BRANCH BLOCK RIGHT [None]
  - ELECTROCARDIOGRAM QT INTERVAL ABNORMAL [None]
